FAERS Safety Report 6534846-0 (Version None)
Quarter: 2010Q1

REPORT INFORMATION
  Report Type: 
  Country: None (occurrence: None)
  Receive Date: 20100112
  Receipt Date: 20100106
  Transmission Date: 20100710
  Serious: Yes (Hospitalization)
  Sender: FDA-Public Use
  Company Number: PHEH2009US14053

PATIENT
  Sex: Male

DRUGS (12)
  1. EXJADE [Suspect]
     Dosage: 2250 MG DAILY
     Route: 048
  2. PRILOSEC [Concomitant]
  3. ZOLOFT [Concomitant]
  4. METOPROLOL [Concomitant]
  5. CARDIZEM [Concomitant]
  6. COUMADIN [Concomitant]
  7. HEPARIN [Concomitant]
  8. LOVENOX [Concomitant]
  9. OXYCODONE [Concomitant]
  10. INSULIN [Concomitant]
  11. FENTANYL-100 [Concomitant]
  12. IFOSFAMIDE [Concomitant]

REACTIONS (4)
  - ABSCESS DRAINAGE [None]
  - DEBRIDEMENT [None]
  - SEPSIS [None]
  - SURGERY [None]
